FAERS Safety Report 6033041-1 (Version None)
Quarter: 2009Q1

REPORT INFORMATION
  Report Type: 
  Country: None (occurrence: None)
  Receive Date: 20090105
  Receipt Date: 20080806
  Transmission Date: 20090719
  Serious: Yes (Other)
  Sender: FDA-Public Use
  Company Number: US-001693

PATIENT
  Age: 34 Year
  Sex: Female
  Weight: 111 kg

DRUGS (10)
  1. PROHANCE [Suspect]
     Indication: CEREBROVASCULAR ACCIDENT
     Dosage: 20ML QD INTRAVENOUS (NOT OTHERWISE SPECIFIED
     Route: 042
     Dates: start: 20080806, end: 20080806
  2. PROHANCE [Suspect]
     Indication: NUCLEAR MAGNETIC RESONANCE IMAGING BRAIN
     Dosage: 20ML QD INTRAVENOUS (NOT OTHERWISE SPECIFIED
     Route: 042
     Dates: start: 20080806, end: 20080806
  3. ASPIRIN [Concomitant]
  4. SENOKOT-S (DOCUSATE SODIUM;SENNA ALEXANDRINA) [Concomitant]
  5. LOVENOX [Concomitant]
  6. ACETAMINOPHEN [Concomitant]
  7. SODIUM CHLORIDE 0.9% [Concomitant]
  8. LABETALOL HCL [Concomitant]
  9. MILK OF MAGNESIA TAB [Concomitant]
  10. MAC-AL PLUS XS (ALUMINIUM HYDROXIDE;MAGNESIUM HYDROXIDE;SIMETICONE) [Concomitant]

REACTIONS (1)
  - ANAPHYLACTOID SHOCK [None]
